FAERS Safety Report 6687861-0 (Version None)
Quarter: 2010Q2

REPORT INFORMATION
  Report Type: 
  Country: None (occurrence: None)
  Receive Date: 20100420
  Receipt Date: 20100409
  Transmission Date: 20101027
  Serious: Yes (Other)
  Sender: FDA-Public Use
  Company Number: CA-WYE-G05959510

PATIENT
  Age: 27 Year
  Sex: Male

DRUGS (6)
  1. EFFEXOR XR [Suspect]
  2. ASPIRIN [Concomitant]
  3. BUPROPION HCL [Concomitant]
  4. ACETAMINOPHEN [Concomitant]
  5. GABAPENTIN [Concomitant]
  6. DURAGESIC-100 [Suspect]

REACTIONS (8)
  - ABDOMINAL DISCOMFORT [None]
  - DIARRHOEA [None]
  - HYPERHIDROSIS [None]
  - MUSCULOSKELETAL STIFFNESS [None]
  - MYDRIASIS [None]
  - NERVOUSNESS [None]
  - PSYCHOMOTOR HYPERACTIVITY [None]
  - SEROTONIN SYNDROME [None]
